FAERS Safety Report 6844612-4 (Version None)
Quarter: 2010Q3

REPORT INFORMATION
  Report Type: 
  Country: None (occurrence: None)
  Receive Date: 20100715
  Receipt Date: 20100709
  Transmission Date: 20110219
  Serious: Yes (Hospitalization)
  Sender: FDA-Public Use
  Company Number: GB-PERRIGO-10GB011179

PATIENT
  Age: 57 Year
  Sex: Female

DRUGS (2)
  1. NAPROXEN RX 375 MG 534 [Suspect]
     Indication: PAIN
     Dosage: 375 MG, UNK
     Route: 048
     Dates: end: 20100301
  2. ASPIRIN [Suspect]
     Indication: PRODUCT USED FOR UNKNOWN INDICATION
     Dosage: 75 MG, UNK
     Route: 048

REACTIONS (1)
  - GASTROINTESTINAL HAEMORRHAGE [None]
